FAERS Safety Report 7821162-X (Version None)
Quarter: 2011Q4

REPORT INFORMATION
  Report Type: 
  Country: None (occurrence: None)
  Receive Date: 20111018
  Receipt Date: 20110127
  Transmission Date: 20120403
  Serious: No
  Sender: FDA-Public Use
  Company Number: US-ASTRAZENECA-2011SE04741

PATIENT
  Age: 64 Year
  Sex: Female
  Weight: 73.5 kg

DRUGS (7)
  1. OXYGEN [Concomitant]
  2. ZYLOTAN [Concomitant]
     Indication: GLAUCOMA
  3. ASPIRIN [Concomitant]
  4. SYMBICORT [Suspect]
     Indication: CHRONIC OBSTRUCTIVE PULMONARY DISEASE
     Dosage: 320MCG TWO TIMES A DAY
     Route: 055
     Dates: start: 20090101
  5. COMBIVENT [Concomitant]
     Indication: CHRONIC OBSTRUCTIVE PULMONARY DISEASE
  6. SIMVASTATIN [Concomitant]
     Indication: HYPERCHOLESTEROLAEMIA
  7. SYNTHROID [Concomitant]
     Indication: THYROID DISORDER

REACTIONS (3)
  - INFECTION [None]
  - UPPER-AIRWAY COUGH SYNDROME [None]
  - NASAL CONGESTION [None]
